FAERS Safety Report 5902368-3 (Version None)
Quarter: 2008Q3

REPORT INFORMATION
  Report Type: 
  Country: None (occurrence: None)
  Receive Date: 20080919
  Receipt Date: 20080708
  Transmission Date: 20090109
  Serious: No
  Sender: FDA-Public Use
  Company Number: US-WYE-H05006008

PATIENT
  Sex: Female

DRUGS (5)
  1. PRISTIQ [Suspect]
     Indication: MAJOR DEPRESSION
     Dosage: 50 MG 1X PER 1 DAY, ORAL
     Route: 048
     Dates: start: 20080603, end: 20080708
  2. CADUET (AMLODIPINE BESILATE/ATORVASTATIN CALCIUM) [Concomitant]
  3. DIVOAN (VALSARTAN) [Concomitant]
  4. MIRTAZAPINE [Concomitant]
  5. ATIVAN [Concomitant]

REACTIONS (4)
  - ANOREXIA [None]
  - DRUG INEFFECTIVE [None]
  - NERVOUSNESS [None]
  - SOMNOLENCE [None]
